FAERS Safety Report 7694314-X (Version None)
Quarter: 2011Q3

REPORT INFORMATION
  Report Type: 
  Country: None (occurrence: None)
  Receive Date: 20110819
  Receipt Date: 20110812
  Transmission Date: 20111222
  Serious: Yes (Other)
  Sender: FDA-Public Use
  Company Number: DE-B.I. PHARMACEUTICALS,INC./RIDGEFIELD-2011-DE-04578DE

PATIENT
  Sex: Female
  Weight: 17 kg

DRUGS (9)
  1. CETIRIZINE HCL [Suspect]
     Dosage: 1 ANZ
     Route: 048
  2. LEVOTHYROXINE SODIUM [Suspect]
     Dosage: 100 MG
     Route: 048
  3. AGGRENOX [Suspect]
     Dosage: 1 ANZ
     Route: 048
  4. CITALOPRAM HYDROBROMIDE [Suspect]
     Dosage: 30 MG
     Route: 048
  5. OMEPRAZOLE [Suspect]
     Dosage: 40 MG
     Route: 048
  6. METOPROLOL TARTRATE [Suspect]
     Dosage: 50 MG
     Route: 048
  7. MOXONIDIN [Suspect]
     Dosage: 0.3 ANZ
     Route: 048
  8. RAMIPRIL [Suspect]
     Dosage: 10 MG
     Route: 048
  9. IBUPROFEN [Suspect]
     Dosage: 600 MG
     Route: 048

REACTIONS (2)
  - HYPERTENSION [None]
  - ACCIDENTAL DRUG INTAKE BY CHILD [None]
